FAERS Safety Report 7619823-0 (Version None)
Quarter: 2011Q3

REPORT INFORMATION
  Report Type: 
  Country: None (occurrence: None)
  Receive Date: 20110719
  Receipt Date: 20110711
  Transmission Date: 20111222
  Serious: Yes (Hospitalization)
  Sender: FDA-Public Use
  Company Number: UG-B.I. PHARMACEUTICALS,INC./RIDGEFIELD-2011-DE-04024GD

PATIENT
  Sex: Female

DRUGS (3)
  1. ZIDOVUDINE [Suspect]
     Indication: HIV INFECTION
     Dates: start: 20101001
  2. NEVIRAPINE [Suspect]
     Indication: HIV INFECTION
     Dates: start: 20101001
  3. LAMIVUDINE [Suspect]
     Indication: HIV INFECTION
     Dates: start: 20101001

REACTIONS (10)
  - DECREASED APPETITE [None]
  - MYALGIA [None]
  - MALAISE [None]
  - DYSPHAGIA [None]
  - IMMUNE RECONSTITUTION SYNDROME [None]
  - THYROID GLAND ABSCESS [None]
  - NIGHT SWEATS [None]
  - THYROID TUBERCULOSIS [None]
  - PYREXIA [None]
  - TEMPERATURE INTOLERANCE [None]
